FAERS Safety Report 8179051-X (Version None)
Quarter: 2012Q1

REPORT INFORMATION
  Report Type: 
  Country: None (occurrence: None)
  Receive Date: 20120302
  Receipt Date: 20120228
  Transmission Date: 20120608
  Serious: Yes (Other)
  Sender: FDA-Public Use
  Company Number: PL-ROCHE-1033783

PATIENT
  Age: 49 Year
  Sex: Female
  Weight: 78.7 kg

DRUGS (1)
  1. VEMURAFENIB [Suspect]
     Indication: MALIGNANT MELANOMA
     Dosage: LAST DOSE PRIOR TO SAE: 06/FEB/2012
     Route: 048
     Dates: start: 20111129

REACTIONS (2)
  - PAPILLOMA [None]
  - ACANTHOSIS [None]
